FAERS Safety Report 14893882 (Version 3)
Quarter: 2019Q2

REPORT INFORMATION
  Report Type: Spontaneous
  Country: US (occurrence: US)
  Receive Date: 20180514
  Receipt Date: 20190613
  Transmission Date: 20190711
  Serious: Yes (Hospitalization)
  Sender: FDA-Public Use
  Company Number: US-ACTELION-A-NJ2018-171923

PATIENT
  Sex: Female

DRUGS (6)
  1. OPSUMIT [Suspect]
     Active Substance: MACITENTAN
     Indication: PULMONARY ARTERIAL HYPERTENSION
     Dosage: 10 MG, QD
     Route: 048
     Dates: start: 20141203
  2. TADALAFIL. [Concomitant]
     Active Substance: TADALAFIL
     Dosage: 40 MG, QD
  3. ADCIRCA [Concomitant]
     Active Substance: TADALAFIL
     Dosage: 40 MG, QD
     Route: 048
     Dates: start: 201504
  4. PREDNISONE. [Concomitant]
     Active Substance: PREDNISONE
     Dosage: 20 MG TAPER
  5. ALBUTEROL. [Concomitant]
     Active Substance: ALBUTEROL
     Dosage: 2 PUFFS Q6H
  6. ADCIRCA [Concomitant]
     Active Substance: TADALAFIL
     Dosage: UNK

REACTIONS (13)
  - Cardiac failure congestive [Unknown]
  - Product use issue [Unknown]
  - Interstitial lung disease [Unknown]
  - Chronic obstructive pulmonary disease [Unknown]
  - Hypertension [Recovered/Resolved]
  - Fluid retention [Recovered/Resolved]
  - Dyspnoea [Unknown]
  - Anaemia [Unknown]
  - Pulmonary oedema [Recovering/Resolving]
  - Pulmonary arterial hypertension [Unknown]
  - Condition aggravated [Unknown]
  - Gastrointestinal haemorrhage [Unknown]
  - Peripheral swelling [Not Recovered/Not Resolved]
